FAERS Safety Report 20998978 (Version 1)
Quarter: 2022Q2

REPORT INFORMATION
  Report Type: Spontaneous
  Country: US (occurrence: None)
  Receive Date: 20220618
  Receipt Date: 20220618
  Transmission Date: 20220721
  Serious: Yes (Life-Threatening, Hospitalization, Other)
  Sender: FDA-Public Use
  Company Number: None

PATIENT
  Age: 42 Year
  Sex: Female
  Weight: 65.32 kg

DRUGS (3)
  1. ENTRESTO [Suspect]
     Active Substance: SACUBITRIL\VALSARTAN
  2. Metoprolol HCT [Concomitant]
  3. ATORVASTATIN [Concomitant]
     Active Substance: ATORVASTATIN

REACTIONS (7)
  - Joint swelling [None]
  - Peripheral swelling [None]
  - Dyspnoea [None]
  - Swelling face [None]
  - Peripheral swelling [None]
  - Cardiac failure congestive [None]
  - Blood pressure inadequately controlled [None]

NARRATIVE: CASE EVENT DATE: 20210622
